FAERS Safety Report 23800160 (Version 1)
Quarter: 2024Q2

REPORT INFORMATION
  Report Type: Spontaneous
  Country: US (occurrence: None)
  Receive Date: 20240429
  Receipt Date: 20240429
  Transmission Date: 20240715
  Serious: Yes (Hospitalization)
  Sender: FDA-Public Use
  Company Number: None

PATIENT
  Age: 62 Year
  Sex: Male
  Weight: 100 kg

DRUGS (1)
  1. HYDRALAZINE HCL [Suspect]
     Active Substance: HYDRALAZINE HYDROCHLORIDE
     Indication: Hypertension
     Dosage: 20  MG ONCE IV
     Route: 042
     Dates: start: 20230131, end: 20230131

REACTIONS (5)
  - Anaphylactic reaction [None]
  - Hypotension [None]
  - Asthenia [None]
  - Cough [None]
  - Syncope [None]

NARRATIVE: CASE EVENT DATE: 20230201
